FAERS Safety Report 8156993-2 (Version None)
Quarter: 2012Q1

REPORT INFORMATION
  Report Type: 
  Country: None (occurrence: None)
  Receive Date: 20120222
  Receipt Date: 20120215
  Transmission Date: 20120608
  Serious: Yes (Other)
  Sender: FDA-Public Use
  Company Number: US-JNJFOC-20120208338

PATIENT
  Age: 64 Year
  Sex: Male
  Weight: 76.2 kg

DRUGS (8)
  1. TYLENOL-500 [Suspect]
     Route: 048
  2. TYLENOL-500 [Suspect]
     Indication: ARTHRITIS
     Route: 048
     Dates: end: 20120212
  3. EXTRA STRENGTH TYLENOL [Suspect]
     Route: 048
  4. EXTRA STRENGTH TYLENOL [Suspect]
     Indication: NECK PAIN
     Route: 048
     Dates: end: 20120201
  5. COREG [Concomitant]
     Indication: HYPERTENSION
     Route: 048
     Dates: start: 20111101
  6. LUTEIN [Concomitant]
     Indication: MEDICAL DIET
     Route: 048
  7. ASPIRIN [Concomitant]
     Indication: PROPHYLAXIS
     Route: 048
     Dates: start: 20111101
  8. DAILY MULTIVITAMIN [Concomitant]
     Indication: MEDICAL DIET
     Route: 048

REACTIONS (1)
  - BLOOD PRESSURE INCREASED [None]
